FAERS Safety Report 4849817-X (Version None)
Quarter: 2005Q4

REPORT INFORMATION
  Report Type: 
  Country: None (occurrence: None)
  Receive Date: 20051209
  Receipt Date: 20050707
  Transmission Date: 20060501
  Serious: Yes (Other)
  Sender: FDA-Public Use
  Company Number: US-MERCK-0507USA01265

PATIENT
  Age: 57 Year
  Sex: Male
  Weight: 86 kg

DRUGS (9)
  1. CIPRO [Concomitant]
     Route: 065
  2. OXYBUTIN [Concomitant]
     Indication: INTERVERTEBRAL DISC PROTRUSION
     Route: 065
  3. HYDROCODONE HYDROCHLORIDE [Suspect]
     Route: 065
  4. RANITIDINE [Concomitant]
     Indication: INTERVERTEBRAL DISC PROTRUSION
     Route: 065
  5. IBUPROFEN [Suspect]
     Route: 065
  6. VICODIN [Concomitant]
     Indication: INTERVERTEBRAL DISC PROTRUSION
     Route: 065
  7. ALEVE [Concomitant]
     Route: 065
     Dates: start: 19970101
  8. SAW PALMETTO [Concomitant]
     Route: 065
     Dates: start: 20030101, end: 20040101
  9. VIOXX [Suspect]
     Indication: BACK PAIN
     Route: 048
     Dates: start: 20031201, end: 20040901

REACTIONS (4)
  - ABDOMINAL PAIN UPPER [None]
  - CEREBROVASCULAR ACCIDENT [None]
  - MUSCLE SPASMS [None]
  - NAUSEA [None]
